FAERS Safety Report 8219597-9 (Version None)
Quarter: 2012Q1

REPORT INFORMATION
  Report Type: 
  Country: None (occurrence: None)
  Receive Date: 20120319
  Receipt Date: 20120315
  Transmission Date: 20120608
  Serious: Yes (Hospitalization, Other)
  Sender: FDA-Public Use
  Company Number: JP-PFIZER INC-2012025047

PATIENT
  Sex: Male
  Weight: 2.51 kg

DRUGS (7)
  1. ZOLOFT [Suspect]
     Indication: DEPRESSION
     Dosage: 75 MG, 1X/DAY
     Route: 064
     Dates: start: 20111201
  2. MIRTAZAPINE [Suspect]
     Indication: DEPRESSION
     Dosage: 30 MG, 1X/DAY
     Route: 064
     Dates: start: 20111201
  3. ZOLPIDEM [Suspect]
     Indication: DEPRESSION
     Dosage: 5 MG, 1X/DAY
     Route: 064
     Dates: start: 20111201
  4. SILECE [Concomitant]
     Dosage: 1 MG, 1X/DAY
     Route: 064
     Dates: start: 20120101
  5. ALPRAZOLAM [Suspect]
     Dosage: 0.4 MG, 1X/DAY
     Route: 064
     Dates: start: 20111201
  6. CLONAZEPAM [Concomitant]
     Dosage: 1 MG, 1X/DAY
     Route: 064
     Dates: start: 20120101
  7. CHLORPROMAZINE HCL [Concomitant]
     Dosage: 25 MG, AS NEEDED
     Route: 064
     Dates: start: 20120101

REACTIONS (4)
  - IRRITABILITY [None]
  - WITHDRAWAL SYNDROME [None]
  - VOMITING [None]
  - FOETAL EXPOSURE DURING PREGNANCY [None]
